FAERS Safety Report 16995729 (Version 3)
Quarter: 2019Q4

REPORT INFORMATION
  Report Type: Spontaneous
  Country: US (occurrence: US)
  Receive Date: 20191105
  Receipt Date: 20191230
  Transmission Date: 20200122
  Serious: No
  Sender: FDA-Public Use
  Company Number: US-PFIZER INC-2019474815

PATIENT
  Age: 41 Year
  Sex: Female
  Weight: 70.3 kg

DRUGS (2)
  1. CYTOMEL [Suspect]
     Active Substance: LIOTHYRONINE SODIUM
     Indication: HYPOTHYROIDISM
     Dosage: 5 UG, UNK
  2. CYTOMEL [Suspect]
     Active Substance: LIOTHYRONINE SODIUM
     Indication: TRI-IODOTHYRONINE DECREASED
     Dosage: 10 UG, DAILY
     Dates: start: 2000

REACTIONS (7)
  - Drug ineffective [Not Recovered/Not Resolved]
  - Product quality issue [Unknown]
  - Poor quality sleep [Recovered/Resolved]
  - Peripheral coldness [Not Recovered/Not Resolved]
  - Weight increased [Unknown]
  - Tri-iodothyronine abnormal [Not Recovered/Not Resolved]
  - Bowel movement irregularity [Not Recovered/Not Resolved]
